FAERS Safety Report 24961072 (Version 7)
Quarter: 2025Q2

REPORT INFORMATION
  Report Type: Spontaneous
  Country: CL (occurrence: CL)
  Receive Date: 20250212
  Receipt Date: 20250502
  Transmission Date: 20250716
  Serious: No
  Sender: PFIZER
  Company Number: CL-PFIZER INC-PV202500013425

PATIENT
  Age: 14 Year
  Sex: Male

DRUGS (1)
  1. GENOTROPIN [Suspect]
     Active Substance: SOMATROPIN

REACTIONS (7)
  - Device information output issue [Unknown]
  - Device power source issue [Unknown]
  - Device leakage [Unknown]
  - Device mechanical issue [Unknown]
  - Device connection issue [Unknown]
  - Device breakage [Unknown]
  - Drug dose omission by device [Unknown]
